APPROVED DRUG PRODUCT: ENALAPRIL MALEATE AND HYDROCHLOROTHIAZIDE
Active Ingredient: ENALAPRIL MALEATE; HYDROCHLOROTHIAZIDE
Strength: 10MG;25MG
Dosage Form/Route: TABLET;ORAL
Application: A075736 | Product #002
Applicant: IVAX PHARMACEUTICALS INC SUB TEVA PHARMACEUTICALS USA
Approved: Mar 25, 2003 | RLD: No | RS: No | Type: DISCN